FAERS Safety Report 6650994-9 (Version None)
Quarter: 2010Q1

REPORT INFORMATION
  Report Type: 
  Country: None (occurrence: None)
  Receive Date: 20100325
  Receipt Date: 20100315
  Transmission Date: 20100710
  Serious: No
  Sender: FDA-Public Use
  Company Number: US-BIOGENIDEC-2010BI009107

PATIENT
  Sex: Female

DRUGS (1)
  1. TYSABRI [Suspect]
     Indication: MULTIPLE SCLEROSIS
     Route: 042
     Dates: end: 20050101

REACTIONS (5)
  - AMNESIA [None]
  - DRUG DEPENDENCE [None]
  - IMPAIRED HEALING [None]
  - OPTIC NERVE DISORDER [None]
  - PANIC ATTACK [None]
